FAERS Safety Report 8118513-8 (Version None)
Quarter: 2012Q1

REPORT INFORMATION
  Report Type: 
  Country: None (occurrence: None)
  Receive Date: 20120207
  Receipt Date: 20120203
  Transmission Date: 20120608
  Serious: No
  Sender: FDA-Public Use
  Company Number: US-BAYER-2012-011819

PATIENT
  Age: 22 Year
  Sex: Female
  Weight: 57 kg

DRUGS (2)
  1. ALEVE (CAPLET) [Suspect]
     Indication: DYSMENORRHOEA
     Dosage: 1 TAB USED ONLY ONE TIME
     Route: 048
     Dates: start: 20120122, end: 20120122
  2. ALEVE (CAPLET) [Suspect]

REACTIONS (6)
  - COUGH [None]
  - LIP SWELLING [None]
  - NASAL OEDEMA [None]
  - OEDEMA PERIPHERAL [None]
  - TREMOR [None]
  - URTICARIA [None]
